FAERS Safety Report 13521660 (Version 1)
Quarter: 2017Q2

REPORT INFORMATION
  Report Type: Spontaneous
  Country: US (occurrence: US)
  Receive Date: 20170507
  Receipt Date: 20170507
  Transmission Date: 20170830
  Serious: Yes (Hospitalization)
  Sender: FDA-Public Use
  Company Number: None

PATIENT
  Age: 28 Year
  Sex: Male
  Weight: 76.5 kg

DRUGS (4)
  1. OXYBUTYNIN 10MG ER TAB KRE JANSSEN [Suspect]
     Active Substance: OXYBUTYNIN CHLORIDE
     Indication: DYSURIA
     Dosage: ?          QUANTITY:30 TABLET(S);?
     Route: 048
     Dates: start: 20161011, end: 20161021
  2. MELATONIN [Concomitant]
     Active Substance: MELATONIN
  3. VITAMIN D [Concomitant]
     Active Substance: CHOLECALCIFEROL
  4. OXYBUTYNIN 10MG ER TAB KRE JANSSEN [Suspect]
     Active Substance: OXYBUTYNIN CHLORIDE
     Indication: POLLAKIURIA
     Dosage: ?          QUANTITY:30 TABLET(S);?
     Route: 048
     Dates: start: 20161011, end: 20161021

REACTIONS (2)
  - Feeling abnormal [None]
  - Heart rate increased [None]

NARRATIVE: CASE EVENT DATE: 20161021
